FAERS Safety Report 8963154 (Version 2)
Quarter: 2013Q2

REPORT INFORMATION
  Report Type: Spontaneous
  Country: CA (occurrence: CA)
  Receive Date: 20121214
  Receipt Date: 20130605
  Transmission Date: 20140414
  Serious: Yes (Other)
  Sender: FDA-Public Use
  Company Number: CA-ELI_LILLY_AND_COMPANY-CA201208009235

PATIENT
  Age: 71 Year
  Sex: Female

DRUGS (2)
  1. HUMALOG LISPRO [Suspect]
     Dosage: UNK UNK, TID
     Dates: start: 2005
  2. LANTUS [Concomitant]
     Dosage: UNK, OTHER

REACTIONS (7)
  - Vitreous haemorrhage [Recovered/Resolved]
  - Glaucoma [Unknown]
  - Visual acuity reduced [Unknown]
  - Vision blurred [Unknown]
  - Blood glucose increased [Unknown]
  - Eye swelling [Unknown]
  - Cataract [Recovered/Resolved]
